FAERS Safety Report 4314418-9 (Version None)
Quarter: 2004Q1

REPORT INFORMATION
  Report Type: 
  Country: None (occurrence: None)
  Receive Date: 20040309
  Receipt Date: 20040304
  Transmission Date: 20041129
  Serious: Yes (Other)
  Sender: FDA-Public Use
  Company Number: DE-GLAXOSMITHKLINE-D0043336A

PATIENT
  Age: 2 Year
  Sex: Male

DRUGS (1)
  1. SULTANOL [Suspect]
     Route: 055

REACTIONS (1)
  - HALLUCINATION [None]
